FAERS Safety Report 10225789 (Version 1)
Quarter: 2014Q2

REPORT INFORMATION
  Report Type: Spontaneous
  Country: US (occurrence: US)
  Receive Date: 20140609
  Receipt Date: 20140609
  Transmission Date: 20141212
  Serious: Yes (Hospitalization)
  Sender: FDA-Public Use
  Company Number: US-ASTELLAS-2013US006785

PATIENT
  Age: 76 Year
  Sex: Male

DRUGS (1)
  1. PROGRAF [Suspect]
     Indication: RENAL TRANSPLANT
     Dosage: 4 MG AM, 3 MG PM
     Route: 048
     Dates: start: 20060712

REACTIONS (4)
  - Thrombosis [Unknown]
  - Renal impairment [Unknown]
  - Blood pressure increased [Unknown]
  - Blood glucose increased [Unknown]
